FAERS Safety Report 19775570 (Version 2)
Quarter: 2021Q3

REPORT INFORMATION
  Report Type: Spontaneous
  Country: US (occurrence: US)
  Receive Date: 20210901
  Receipt Date: 20210928
  Transmission Date: 20211014
  Serious: Yes (Other)
  Sender: FDA-Public Use
  Company Number: US-BAUSCH-BL-2021-028702

PATIENT
  Age: 61 Year
  Sex: Male

DRUGS (1)
  1. 5?FLUOROURACIL [Suspect]
     Active Substance: FLUOROURACIL
     Indication: ACTINIC KERATOSIS
     Route: 061

REACTIONS (2)
  - Metastases to skin [Unknown]
  - Follicle centre lymphoma, follicular grade I, II, III stage III [Unknown]
